FAERS Safety Report 7953063-0 (Version None)
Quarter: 2011Q4

REPORT INFORMATION
  Report Type: 
  Country: None (occurrence: None)
  Receive Date: 20111201
  Receipt Date: 20111128
  Transmission Date: 20120403
  Serious: Yes (Hospitalization, Other)
  Sender: FDA-Public Use
  Company Number: DE-AMGEN-DEUSP2011059221

PATIENT
  Age: 81 Year
  Sex: Male

DRUGS (6)
  1. TRI-THIAZID [Concomitant]
  2. XGEVA [Suspect]
     Indication: PRODUCT USED FOR UNKNOWN INDICATION
     Dosage: 120 MG, UNK
     Route: 058
     Dates: start: 20111025
  3. ACTRAPHANE [Concomitant]
     Indication: DIABETES MELLITUS
     Route: 058
  4. BISOPROLOL FUMARATE AND HYDROCHLOROTHIAZIDE [Concomitant]
     Indication: HYPERTENSION
     Route: 048
  5. CELEBREX [Concomitant]
     Dosage: 200 MG, UNK
  6. AMLODIPINE BESYLATE AND OLMESARTAN MEDOXOMIL [Concomitant]

REACTIONS (1)
  - THROMBOSIS [None]
